FAERS Safety Report 23904345 (Version 1)
Quarter: 2024Q2

REPORT INFORMATION
  Report Type: Spontaneous
  Country: US (occurrence: US)
  Receive Date: 20240527
  Receipt Date: 20240527
  Transmission Date: 20240716
  Serious: Yes (Hospitalization, Other)
  Sender: FDA-Public Use
  Company Number: US-SA-SAC20240524000587

PATIENT
  Age: 73 Year
  Sex: Female
  Weight: 48.9 kg

DRUGS (1)
  1. DUPIXENT [Suspect]
     Active Substance: DUPILUMAB
     Indication: Dermatitis atopic
     Dosage: 300 MG, QOW
     Route: 058

REACTIONS (3)
  - Internal haemorrhage [Unknown]
  - Rash [Unknown]
  - Haemorrhage [Unknown]

NARRATIVE: CASE EVENT DATE: 20240501
